FAERS Safety Report 4767013-1 (Version None)
Quarter: 2005Q3

REPORT INFORMATION
  Report Type: 
  Country: None (occurrence: None)
  Receive Date: 20050908
  Receipt Date: 20050812
  Transmission Date: 20060218
  Serious: Yes (Hospitalization)
  Sender: FDA-Public Use
  Company Number: 6016652

PATIENT
  Age: 75 Year
  Sex: Male

DRUGS (4)
  1. DAPA-TABS (TABLET) (INDAPAMIDE) [Suspect]
     Indication: ESSENTIAL HYPERTENSION
     Dosage: 25 MG (25 MG,1 D),ORAL
     Route: 048
     Dates: end: 20020531
  2. FENAC (TABLET) (DICLOFENAC SODIUM) [Suspect]
     Indication: OSTEOARTHRITIS
     Dosage: 100 MG (100 MG,1 D),ORAL
     Route: 048
  3. DIAFORMIN TABLET ( METFORMIN HYDROCHLORIDE) [Suspect]
     Indication: DUODENAL ULCER
     Dosage: 850 MG
     Route: 048
     Dates: end: 20020531
  4. COVERSYL TABLET (PERINDOPRIL) [Suspect]
     Indication: ESSENTIAL HYPERTENSION
     Dosage: 4 MG
     Route: 048
     Dates: end: 20020531

REACTIONS (1)
  - RENAL FAILURE ACUTE [None]
